FAERS Safety Report 9992545 (Version 1)
Quarter: 2014Q1

REPORT INFORMATION
  Report Type: Spontaneous
  Country: US (occurrence: US)
  Receive Date: 20140310
  Receipt Date: 20140310
  Transmission Date: 20141002
  Serious: No
  Sender: FDA-Public Use
  Company Number: US-PFIZER INC-2014067437

PATIENT
  Age: 52 Year
  Sex: Female

DRUGS (11)
  1. NEURONTIN [Suspect]
     Dosage: UNK
  2. CLINDAMYCIN HCL [Suspect]
     Dosage: UNK
  3. CINNAMON [Suspect]
     Dosage: UNK
  4. CYMBALTA [Suspect]
     Dosage: UNK
  5. ROCEPHIN [Suspect]
     Dosage: UNK
  6. TYLENOL [Suspect]
     Dosage: UNK
  7. DEPAKOTE [Suspect]
     Dosage: UNK
  8. LAMICTAL [Suspect]
     Dosage: UNK
  9. LITHIUM [Suspect]
     Dosage: UNK
  10. ULTRAM [Suspect]
     Dosage: UNK
  11. PENICILLIN NOS [Suspect]

REACTIONS (1)
  - Drug hypersensitivity [Unknown]
